FAERS Safety Report 25196781 (Version 1)
Quarter: 2025Q2

REPORT INFORMATION
  Report Type: Spontaneous
  Country: CY (occurrence: CY)
  Receive Date: 20250415
  Receipt Date: 20250415
  Transmission Date: 20250716
  Serious: Yes (Hospitalization, Other)
  Sender: CELLTRION
  Company Number: None

PATIENT

DRUGS (1)
  1. YUFLYMA [Suspect]
     Active Substance: ADALIMUMAB-AATY
     Indication: Rheumatoid arthritis
     Dosage: 40 MG, EVERY 2 WEEKS
     Dates: start: 20240124, end: 20240601

REACTIONS (3)
  - Nephrotic syndrome [Recovering/Resolving]
  - Glomerulonephritis [Recovering/Resolving]
  - Lupus-like syndrome [Recovering/Resolving]

NARRATIVE: CASE EVENT DATE: 20240701
